FAERS Safety Report 17078621 (Version 1)
Quarter: 2019Q4

REPORT INFORMATION
  Report Type: Report from Study
  Country: None (occurrence: FR)
  Receive Date: 20191127
  Receipt Date: 20191127
  Transmission Date: 20200122
  Serious: Yes (Hospitalization)
  Sender: FDA-Public Use
  Company Number: FR-ABBVIE-19K-056-2844319-00

PATIENT
  Age: 34 Year
  Sex: Male

DRUGS (4)
  1. VITAMIN B6 [Concomitant]
     Active Substance: PYRIDOXINE HYDROCHLORIDE
     Indication: PRODUCT USED FOR UNKNOWN INDICATION
     Dosage: 250/50
     Route: 048
     Dates: start: 20191007
  2. VITAMIN B9 [Concomitant]
     Indication: PRODUCT USED FOR UNKNOWN INDICATION
     Route: 048
     Dates: start: 20191007
  3. DUODOPA [Suspect]
     Active Substance: CARBIDOPA\LEVODOPA
     Indication: PARKINSONISM
     Dosage: MORNING DOSE 9ML;CONTINUOUS FLOW RATE 4.8ML/H; DURING THE NIGHT EXTRA DOSE 3ML
     Route: 050
     Dates: start: 20190307
  4. VITAMIN B1 [Concomitant]
     Active Substance: THIAMINE HYDROCHLORIDE
     Indication: PRODUCT USED FOR UNKNOWN INDICATION
     Dosage: 250/50
     Route: 048
     Dates: start: 20191007

REACTIONS (9)
  - Malnutrition [Unknown]
  - Weight decreased [Unknown]
  - Depression [Unknown]
  - Peripheral sensory neuropathy [Unknown]
  - Stoma site reaction [Not Recovered/Not Resolved]
  - Axonal neuropathy [Recovering/Resolving]
  - Gait disturbance [Recovering/Resolving]
  - Off label use [Not Recovered/Not Resolved]
  - Vitamin B12 deficiency [Unknown]

NARRATIVE: CASE EVENT DATE: 2019
